FAERS Safety Report 8023061-X (Version None)
Quarter: 2012Q1

REPORT INFORMATION
  Report Type: 
  Country: None (occurrence: None)
  Receive Date: 20120104
  Receipt Date: 20111230
  Transmission Date: 20120608
  Serious: Yes (Death)
  Sender: FDA-Public Use
  Company Number: US-PFIZER INC-2011265894

PATIENT
  Sex: Male

DRUGS (3)
  1. VFEND [Suspect]
     Indication: CHRONIC LYMPHOCYTIC LEUKAEMIA
     Dosage: 200 MG, 2X/DAY
     Dates: start: 20110906
  2. VFEND [Suspect]
     Indication: PNEUMONIA FUNGAL
  3. NEOMYCIN SULFATE [Suspect]
     Dosage: UNK

REACTIONS (3)
  - PNEUMONIA FUNGAL [None]
  - STEM CELL TRANSPLANT [None]
  - GRAFT VERSUS HOST DISEASE [None]
